FAERS Safety Report 7160759-X (Version None)
Quarter: 2010Q4

REPORT INFORMATION
  Report Type: 
  Country: None (occurrence: None)
  Receive Date: 20101214
  Receipt Date: 20091222
  Transmission Date: 20110411
  Serious: No
  Sender: FDA-Public Use
  Company Number: US-AMGEN-TCS376393

PATIENT

DRUGS (5)
  1. ENBREL [Suspect]
     Indication: PSORIASIS
     Dosage: 50 MG, 2 TIMES/WK
     Route: 058
     Dates: start: 20070306
  2. DULOXETINE HYDROCHLORIDE [Concomitant]
  3. SERTRALINE HYDROCHLORIDE [Concomitant]
  4. LORSARTAN POTASSIUM HYDROCHLORIDE [Concomitant]
  5. RANITIDINE [Concomitant]

REACTIONS (6)
  - HYPOAESTHESIA [None]
  - INFLUENZA [None]
  - NERVE COMPRESSION [None]
  - PAIN [None]
  - PARAESTHESIA [None]
  - PSORIASIS [None]
